FAERS Safety Report 9935554 (Version 2)
Quarter: 2014Q1

REPORT INFORMATION
  Report Type: Spontaneous
  Country: None (occurrence: US)
  Receive Date: 20140228
  Receipt Date: 20140305
  Transmission Date: 20141002
  Serious: Yes (Hospitalization)
  Sender: FDA-Public Use
  Company Number: US-BAXTER-2014BAX009643

PATIENT
  Age: 58 Year
  Sex: Male
  Weight: 90.91 kg

DRUGS (2)
  1. DIANEAL LOW CALCIUM [Suspect]
     Indication: RENAL FAILURE CHRONIC
     Route: 033
     Dates: start: 20140204
  2. DIANEAL LOW CALCIUM [Suspect]
     Dosage: LAST FILL
     Route: 033
     Dates: start: 20140204

REACTIONS (1)
  - Cardiac disorder [Recovered/Resolved]
